FAERS Safety Report 6139367-5 (Version None)
Quarter: 2009Q2

REPORT INFORMATION
  Report Type: 
  Country: None (occurrence: None)
  Receive Date: 20090401
  Receipt Date: 20090323
  Transmission Date: 20091009
  Serious: Yes (Life-Threatening, Hospitalization, Disabling)
  Sender: FDA-Public Use
  Company Number: JP-ROCHE-590391

PATIENT
  Age: 68 Year
  Sex: Female
  Weight: 65 kg

DRUGS (6)
  1. XELODA [Suspect]
     Indication: COLON CANCER
     Dosage: DRUG: XELODA 300, 2 WEEKS ADMINISTRATION FOLLOWED BY 1 WEEK REST.
     Route: 048
     Dates: start: 20080825, end: 20080922
  2. LOXONIN [Suspect]
     Indication: ABDOMINAL PAIN
     Dosage: NOTE: TAKEN AS NEEDED: 60 MG
     Route: 048
     Dates: start: 20080922, end: 20080923
  3. VITAMIN B COMPLEX CAP [Concomitant]
     Dosage: DRUG NAME: VITAMIN B PREPARATIONS (EXCEPT VITAMIN B1)
  4. MUCOSTA [Concomitant]
     Dosage: NOTE: TAKEN AS NEEDED: 100 MG
     Route: 048
     Dates: start: 20080922, end: 20080923
  5. NORVASC [Concomitant]
     Route: 048
     Dates: start: 20080601, end: 20080922
  6. PYDOXAL [Concomitant]
     Dosage: DRUG NAME: PYDOXAL TAB
     Route: 048
     Dates: start: 20080825, end: 20080922

REACTIONS (4)
  - DECREASED APPETITE [None]
  - DIZZINESS [None]
  - INTESTINAL ISCHAEMIA [None]
  - PALMAR-PLANTAR ERYTHRODYSAESTHESIA SYNDROME [None]
